FAERS Safety Report 16287398 (Version 1)
Quarter: 2019Q2

REPORT INFORMATION
  Report Type: Report from Study
  Country: US (occurrence: US)
  Receive Date: 20190508
  Receipt Date: 20190508
  Transmission Date: 20190711
  Serious: Yes (Hospitalization)
  Sender: FDA-Public Use
  Company Number: US-ACTELION-A-US2019-190081

PATIENT
  Age: 52 Year
  Sex: Female

DRUGS (4)
  1. OPSUMIT [Suspect]
     Active Substance: MACITENTAN
     Indication: PULMONARY ARTERIAL HYPERTENSION
     Dosage: 10 MG, QD
     Route: 048
     Dates: start: 20180817
  2. SERTRALINE [Concomitant]
     Active Substance: SERTRALINE HYDROCHLORIDE
  3. ENOXAPARIN [Concomitant]
     Active Substance: ENOXAPARIN
  4. WARFARIN [Concomitant]
     Active Substance: WARFARIN

REACTIONS (1)
  - Angioplasty [Not Recovered/Not Resolved]

NARRATIVE: CASE EVENT DATE: 201904
